FAERS Safety Report 4338514-5 (Version None)
Quarter: 2004Q2

REPORT INFORMATION
  Report Type: 
  Country: None (occurrence: None)
  Receive Date: 20040414
  Receipt Date: 20040402
  Transmission Date: 20050107
  Serious: Yes (Life-Threatening)
  Sender: FDA-Public Use
  Company Number: JP-GLAXOSMITHKLINE-B0329288A

PATIENT
  Age: 49 Year
  Sex: Female
  Weight: 49 kg

DRUGS (9)
  1. FLOLAN [Suspect]
     Indication: CONGENITAL PULMONARY HYPERTENSION
     Route: 042
     Dates: start: 20011217
  2. FUROSEMIDE [Concomitant]
     Route: 048
  3. SPIRONOLACTONE [Concomitant]
     Route: 048
  4. DIGOXIN [Concomitant]
     Route: 048
  5. WARFARIN POTASSIUM [Concomitant]
     Route: 048
  6. PREDONINE [Concomitant]
     Route: 048
  7. THYRADIN S [Concomitant]
     Route: 048
  8. MYSLEE [Concomitant]
     Route: 048
  9. DOBUTAMINE HCL [Concomitant]

REACTIONS (4)
  - BLOOD PRESSURE IMMEASURABLE [None]
  - HEART RATE DECREASED [None]
  - LOSS OF CONSCIOUSNESS [None]
  - PALPITATIONS [None]
